FAERS Safety Report 13026927 (Version 1)
Quarter: 2016Q4

REPORT INFORMATION
  Report Type: Report from Study
  Country: US (occurrence: US)
  Receive Date: 20161214
  Receipt Date: 20161214
  Transmission Date: 20170207
  Serious: Yes (Disabling, Other)
  Sender: FDA-Public Use
  Company Number: US-SA-2016SA224729

PATIENT
  Age: 40 Year

DRUGS (1)
  1. LEMTRADA [Suspect]
     Active Substance: ALEMTUZUMAB
     Indication: MULTIPLE SCLEROSIS
     Route: 042

REACTIONS (4)
  - Nuclear magnetic resonance imaging abnormal [Unknown]
  - Drug intolerance [Unknown]
  - Disability [Unknown]
  - Multiple sclerosis relapse [Unknown]
